FAERS Safety Report 6122525-3 (Version None)
Quarter: 2009Q1

REPORT INFORMATION
  Report Type: 
  Country: None (occurrence: None)
  Receive Date: 20090318
  Receipt Date: 20081218
  Transmission Date: 20090719
  Serious: No
  Sender: FDA-Public Use
  Company Number: US-ASTRAZENECA-2008UW16453

PATIENT
  Sex: Female
  Weight: 86.2 kg

DRUGS (6)
  1. SYMBICORT [Suspect]
     Indication: ASTHMA
     Route: 055
  2. SYNTHROID [Concomitant]
  3. PULMICORT FLEXHALER [Concomitant]
     Dosage: 180/4.5 UG TWO PUFFS PER DAY
     Route: 055
  4. PULMICORT RESPULES [Concomitant]
     Route: 055
  5. OXYGEN [Concomitant]
     Route: 055
  6. PULMICORT [Concomitant]
     Route: 055
     Dates: start: 19980101

REACTIONS (4)
  - DRUG INEFFECTIVE [None]
  - HOT FLUSH [None]
  - HYPERSENSITIVITY [None]
  - OROPHARYNGEAL PAIN [None]
